FAERS Safety Report 10186551 (Version 2)
Quarter: 2014Q2

REPORT INFORMATION
  Report Type: Spontaneous
  Country: JP (occurrence: JP)
  Receive Date: 20140521
  Receipt Date: 20140630
  Transmission Date: 20141212
  Serious: Yes (Other)
  Sender: FDA-Public Use
  Company Number: JP-DSJP-DSJ-2014-108192

PATIENT
  Sex: 0

DRUGS (7)
  1. OLMETEC TABLETS 10MG [Suspect]
     Indication: HYPERTENSION
     Dosage: 20 MG, QD
     Route: 048
     Dates: start: 2007
  2. URIEF [Concomitant]
     Indication: BENIGN PROSTATIC HYPERPLASIA
     Dosage: 4 MG, BID
     Route: 048
     Dates: start: 20111202
  3. WARFARIN [Concomitant]
     Indication: ARRHYTHMIA
     Dosage: 4 MG, QD
     Route: 048
     Dates: start: 20070105
  4. WARFARIN [Concomitant]
     Dosage: 0.5 MG, QD
     Route: 048
     Dates: start: 20070105
  5. PRAVASTATIN                        /00880402/ [Concomitant]
     Indication: DYSLIPIDAEMIA
     Dosage: 10 MG, QD
     Route: 048
  6. FAMOTIDINE [Concomitant]
     Dosage: 10 MG, BID
     Route: 048
  7. DUTASTERIDE [Concomitant]
     Indication: BENIGN PROSTATIC HYPERPLASIA
     Dosage: 0.5 MG, QD
     Route: 048

REACTIONS (2)
  - Blood pressure decreased [Recovered/Resolved]
  - Syncope [Recovered/Resolved]
